FAERS Safety Report 4384958-5 (Version None)
Quarter: 2004Q2

REPORT INFORMATION
  Report Type: 
  Country: None (occurrence: None)
  Receive Date: 20040623
  Receipt Date: 20040623
  Transmission Date: 20050107
  Serious: Yes (Hospitalization, Other)
  Sender: FDA-Public Use
  Company Number: None

PATIENT
  Age: 71 Year
  Sex: Male
  Weight: 97 kg

DRUGS (12)
  1. ANGIOMAX [Suspect]
     Indication: CATHETERISATION CARDIAC
     Dosage: 29.1CC/HR,GTT IV
     Route: 042
     Dates: start: 20040621
  2. ANGIOMAX [Suspect]
     Dosage: 9.7,4.5, 4.7 CC, BOLUS IV
     Route: 042
  3. ASPIRIN [Concomitant]
  4. PLAVIX [Concomitant]
  5. ZESTRIL [Concomitant]
  6. ZOCOR [Concomitant]
  7. LASIX [Concomitant]
  8. K-DUR 10 [Concomitant]
  9. IMDUR [Concomitant]
  10. NITROGLYCERIN [Concomitant]
  11. NORVASC [Concomitant]
  12. PANCREALIPASE [Concomitant]

REACTIONS (1)
  - DRUG EFFECT DECREASED [None]
